FAERS Safety Report 22079395 (Version 1)
Quarter: 2023Q1

REPORT INFORMATION
  Report Type: Spontaneous
  Country: SG (occurrence: SG)
  Receive Date: 20230309
  Receipt Date: 20230309
  Transmission Date: 20230418
  Serious: Yes (Other)
  Sender: FDA-Public Use
  Company Number: SG-IGSA-BIG0022455

PATIENT
  Age: 80 Year
  Sex: Male

DRUGS (3)
  1. VERASEAL [Suspect]
     Active Substance: FIBRINOGEN HUMAN\THROMBIN HUMAN
     Indication: Gastrectomy
     Dosage: UNK UNKNOWN, UNKNOWN
     Dates: start: 20230210, end: 20230210
  2. VERASEAL [Suspect]
     Active Substance: FIBRINOGEN HUMAN\THROMBIN HUMAN
     Indication: Haemostasis
  3. VERASEAL [Suspect]
     Active Substance: FIBRINOGEN HUMAN\THROMBIN HUMAN
     Indication: Intentional product use issue

REACTIONS (2)
  - Large intestinal obstruction [Recovering/Resolving]
  - Fistula of small intestine [Recovering/Resolving]

NARRATIVE: CASE EVENT DATE: 20230210
